FAERS Safety Report 8535487-6 (Version None)
Quarter: 2012Q3

REPORT INFORMATION
  Report Type: 
  Country: None (occurrence: None)
  Receive Date: 20120718
  Receipt Date: 20120718
  Transmission Date: 20120928
  Serious: Yes (Hospitalization)
  Sender: FDA-Public Use
  Company Number: None

PATIENT
  Age: 68 Year
  Sex: Female

DRUGS (1)
  1. VICTOZA [Suspect]
     Indication: DIABETES MELLITUS
     Dosage: ONCE A DAY SQ
     Route: 058
     Dates: start: 20120618

REACTIONS (4)
  - VOMITING [None]
  - DIARRHOEA [None]
  - NAUSEA [None]
  - PANCREATITIS [None]
